FAERS Safety Report 6862775-1 (Version None)
Quarter: 2010Q2

REPORT INFORMATION
  Report Type: 
  Country: None (occurrence: None)
  Receive Date: 20100528
  Receipt Date: 20100318
  Transmission Date: 20101027
  Serious: No
  Sender: FDA-Public Use
  Company Number: 2010036065

PATIENT
  Age: 65 Year
  Sex: Female
  Weight: 72 kg

DRUGS (13)
  1. TOVIAZ [Suspect]
     Indication: BLADDER DISORDER
     Dosage: 8 MG, DAILY, ORAL
     Route: 048
     Dates: start: 20100317
  2. EVISTA [Concomitant]
  3. LISINOPRIL [Concomitant]
  4. KLONOPIN [Concomitant]
  5. LIPITOR [Concomitant]
  6. NASONEX [Concomitant]
  7. PROVIGIL [Concomitant]
  8. REBIF [Concomitant]
  9. TRAZODONE HCL [Concomitant]
  10. ULTRAM [Concomitant]
  11. PROTONIX [Concomitant]
  12. PRILOSEC (OMEPRAZOLE) [Concomitant]
  13. MANDELAMINE (METHENAMINE MANDELATE) [Concomitant]

REACTIONS (1)
  - ORAL FUNGAL INFECTION [None]
